FAERS Safety Report 5080272-3 (Version None)
Quarter: 2006Q3

REPORT INFORMATION
  Report Type: 
  Country: None (occurrence: None)
  Receive Date: 20060815
  Receipt Date: 20060804
  Transmission Date: 20061208
  Serious: Yes (Life-Threatening)
  Sender: FDA-Public Use
  Company Number: IT-ABBOTT-06P-083-0339769-00

PATIENT
  Sex: Female

DRUGS (1)
  1. KLACID [Suspect]
     Indication: LUNG DISORDER
     Route: 048
     Dates: start: 20060614, end: 20060620

REACTIONS (2)
  - ALLERGIC GRANULOMATOUS ANGIITIS [None]
  - POLYNEUROPATHY [None]
